FAERS Safety Report 5257647-2 (Version None)
Quarter: 2007Q1

REPORT INFORMATION
  Report Type: 
  Country: None (occurrence: None)
  Receive Date: 20070307
  Receipt Date: 20070302
  Transmission Date: 20070707
  Serious: Yes (Hospitalization)
  Sender: FDA-Public Use
  Company Number: DE-SANOFI-SYNTHELABO-F04200600217

PATIENT
  Sex: Male
  Weight: 80 kg

DRUGS (4)
  1. FOLINIC ACID [Suspect]
     Indication: COLON CANCER
     Route: 041
     Dates: start: 20061011, end: 20061012
  2. FLUOROURACIL [Suspect]
     Indication: COLON CANCER
     Route: 040
     Dates: start: 20061011, end: 20061011
  3. FLUOROURACIL [Suspect]
     Route: 041
     Dates: start: 20061011, end: 20061012
  4. ELOXATIN [Suspect]
     Indication: COLON CANCER
     Route: 041
     Dates: start: 20061011, end: 20061011

REACTIONS (3)
  - DYSPNOEA [None]
  - PLEURAL EFFUSION [None]
  - WEIGHT DECREASED [None]
